FAERS Safety Report 9286133 (Version 1)
Quarter: 2013Q2

REPORT INFORMATION
  Report Type: Spontaneous
  Country: US (occurrence: None)
  Receive Date: 20130510
  Receipt Date: 20130510
  Transmission Date: 20140414
  Serious: Yes (Hospitalization)
  Sender: FDA-Public Use
  Company Number: None

PATIENT
  Age: 79 Year
  Sex: Female
  Weight: 67.58 kg

DRUGS (3)
  1. CARBOPLATIN [Suspect]
  2. PACLITAXEL (TAXOL) [Suspect]
  3. PEGFILGRASTIM [Suspect]

REACTIONS (5)
  - Anaemia [None]
  - Ascites [None]
  - Liver abscess [None]
  - Decreased appetite [None]
  - Dyspnoea [None]
